FAERS Safety Report 7382472-6 (Version None)
Quarter: 2011Q1

REPORT INFORMATION
  Report Type: 
  Country: None (occurrence: None)
  Receive Date: 20110329
  Receipt Date: 20110228
  Transmission Date: 20110831
  Serious: Yes (Hospitalization, Other)
  Sender: FDA-Public Use
  Company Number: US-BAYER-2011-010961

PATIENT
  Sex: Female
  Weight: 56.689 kg

DRUGS (9)
  1. PROZAC [Concomitant]
     Indication: DEPRESSION
     Dosage: 40 MG, QD
     Route: 048
     Dates: start: 20060101
  2. ACETAMINOPHEN [Concomitant]
     Indication: PAIN
     Route: 048
  3. YAZ [Suspect]
     Indication: PREMENSTRUAL SYNDROME
     Dosage: UNK, QD
     Dates: start: 20040101
  4. YAZ [Suspect]
     Dosage: UNK, QD
     Dates: start: 20040101
  5. ACETAMINOPHEN AND HYDROCODONE BITARTRATE [Concomitant]
     Indication: PROCEDURAL PAIN
     Route: 048
  6. KLONOPIN [Concomitant]
  7. UNCODEABLE ^UNCLASSIFIABLE^ [Concomitant]
     Route: 048
  8. VALTREX [Concomitant]
     Dosage: 500 MG, QD
     Route: 048
  9. ALLEGRA-D 12 HOUR [Concomitant]
     Indication: PRODUCT USED FOR UNKNOWN INDICATION
     Dosage: 60 MG, BID

REACTIONS (12)
  - DYSPEPSIA [None]
  - ABDOMINAL DISCOMFORT [None]
  - CONSTIPATION [None]
  - DYSPNOEA [None]
  - BACK PAIN [None]
  - PAIN [None]
  - DIARRHOEA [None]
  - ANXIETY [None]
  - GALLBLADDER DISORDER [None]
  - FATIGUE [None]
  - PAIN IN EXTREMITY [None]
  - CHOLELITHIASIS [None]
